FAERS Safety Report 14002020 (Version 1)
Quarter: 2017Q3

REPORT INFORMATION
  Report Type: Spontaneous
  Country: CO (occurrence: CO)
  Receive Date: 20170922
  Receipt Date: 20170922
  Transmission Date: 20171128
  Serious: Yes (Hospitalization, Other)
  Sender: FDA-Public Use
  Company Number: CO-009507513-1709COL007519

PATIENT
  Age: 16 Year
  Sex: Female
  Weight: 60 kg

DRUGS (1)
  1. IMPLANON [Suspect]
     Active Substance: ETONOGESTREL
     Indication: CONTRACEPTION
     Dosage: 1 IMPLANT (68 MG), EVERY 3 YEARS
     Route: 059
     Dates: start: 20170219

REACTIONS (10)
  - Dizziness [Recovered/Resolved]
  - Nausea [Recovered/Resolved]
  - Unintended pregnancy [Recovered/Resolved]
  - Abdominal pain [Unknown]
  - Pregnancy with implant contraceptive [Recovered/Resolved]
  - Abortion induced [Unknown]
  - Vomiting [Recovered/Resolved]
  - Vaginal haemorrhage [Unknown]
  - Syncope [Unknown]
  - Malaise [Unknown]

NARRATIVE: CASE EVENT DATE: 20170822
